FAERS Safety Report 18517880 (Version 1)
Quarter: 2020Q4

REPORT INFORMATION
  Report Type: Report from Study
  Country: IT (occurrence: IT)
  Receive Date: 20201118
  Receipt Date: 20201118
  Transmission Date: 20210114
  Serious: Yes (Other)
  Sender: FDA-Public Use
  Company Number: IT-MYLANLABS-2020M1094511

PATIENT
  Age: 61 Year
  Sex: Female

DRUGS (10)
  1. CHLORPROMAZINE. [Suspect]
     Active Substance: CHLORPROMAZINE
     Indication: ANXIETY
     Dosage: 800 MILLIGRAM, TOTAL
     Route: 048
     Dates: start: 20200825, end: 20200825
  2. EUTIROX [Concomitant]
     Active Substance: LEVOTHYROXINE SODIUM
     Dosage: 1 DOSAGE FORM
     Route: 048
  3. LARGACTIL                          /00011901/ [Concomitant]
     Active Substance: CHLORPROMAZINE
     Dosage: 1 DOSAGE FORM
     Route: 048
  4. HALOPERIDOL. [Concomitant]
     Active Substance: HALOPERIDOL
     Dosage: 20 GTT DROPS
     Route: 048
  5. LANSOPRAZOLE. [Concomitant]
     Active Substance: LANSOPRAZOLE
     Dosage: 30 MILLIGRAM
     Route: 048
  6. ESKIM [Concomitant]
     Active Substance: OMEGA-3 FATTY ACIDS
     Dosage: 3 DOSAGE FORM
     Route: 048
  7. DEPAKIN CHRONO                     /00228502/ [Concomitant]
     Active Substance: VALPROATE SODIUM
     Dosage: 1.5 DOSAGE FORM
     Route: 048
  8. DIBASE [Concomitant]
     Active Substance: CHOLECALCIFEROL
     Dosage: UNK
  9. SERTRALINE [Concomitant]
     Active Substance: SERTRALINE HYDROCHLORIDE
     Dosage: 200 MILLIGRAM
     Route: 048
  10. ALPRAZOLAM. [Suspect]
     Active Substance: ALPRAZOLAM
     Indication: ANXIETY
     Dosage: 1.5 MILLIGRAM, TOTAL
     Route: 048
     Dates: start: 20200825, end: 20200825

REACTIONS (4)
  - Bradyphrenia [Recovering/Resolving]
  - Hypokinesia [Recovering/Resolving]
  - Sopor [Recovering/Resolving]
  - Drug abuse [Recovering/Resolving]

NARRATIVE: CASE EVENT DATE: 20200825
